FAERS Safety Report 9994324 (Version 1)
Quarter: 2014Q1

REPORT INFORMATION
  Report Type: Spontaneous
  Country: PT (occurrence: PT)
  Receive Date: 20140311
  Receipt Date: 20140311
  Transmission Date: 20141002
  Serious: Yes (Death)
  Sender: FDA-Public Use
  Company Number: PHHY2014PT029049

PATIENT
  Age: 78 Year
  Sex: Female

DRUGS (2)
  1. VALPROIC ACID [Suspect]
     Indication: EPILEPSY
  2. BENZODIAZEPINES [Suspect]
     Indication: EPILEPSY

REACTIONS (2)
  - Death [Fatal]
  - Drug ineffective [Unknown]
